FAERS Safety Report 5857739-0 (Version None)
Quarter: 2008Q3

REPORT INFORMATION
  Report Type: 
  Country: None (occurrence: None)
  Receive Date: 20080826
  Receipt Date: 20080818
  Transmission Date: 20090109
  Serious: Yes (Hospitalization)
  Sender: FDA-Public Use
  Company Number: US-AMGEN-QUU302204

PATIENT
  Sex: Female

DRUGS (2)
  1. ENBREL [Suspect]
     Indication: PSORIASIS
     Route: 058
     Dates: start: 20060216
  2. ENBREL [Suspect]
     Indication: PSORIATIC ARTHROPATHY

REACTIONS (5)
  - DRUG ADMINISTERED AT INAPPROPRIATE SITE [None]
  - ERYTHEMA [None]
  - FRACTURE MALUNION [None]
  - INJECTION SITE PAIN [None]
  - PAIN IN EXTREMITY [None]
